FAERS Safety Report 4265055-6 (Version None)
Quarter: 2004Q1

REPORT INFORMATION
  Report Type: 
  Country: None (occurrence: None)
  Receive Date: 20040105
  Receipt Date: 20031217
  Transmission Date: 20041129
  Serious: Yes (Life-Threatening, Hospitalization)
  Sender: FDA-Public Use
  Company Number: STA-AE-03-MTX-193

PATIENT
  Age: 67 Year
  Sex: Female

DRUGS (3)
  1. METHOTREXATE [Suspect]
     Indication: RHEUMATOID ARTHRITIS
     Dosage: 2.5 MG 2X PER 1 WEEK, ORAL
     Route: 048
     Dates: end: 20030602
  2. PREDNISONE [Suspect]
     Dosage: 20 M 1 X PER 1 DAY
  3. ENBREL [Suspect]
     Indication: RHEUMATOID ARTHRITIS
     Dosage: 25 MG 2 X PER 1 WK, SC
     Route: 058
     Dates: start: 20030201, end: 20030401

REACTIONS (14)
  - BRAIN ABSCESS [None]
  - COMA [None]
  - CSF NEUTROPHIL COUNT INCREASED [None]
  - CSF PROTEIN INCREASED [None]
  - CSF WHITE BLOOD CELL COUNT INCREASED [None]
  - DEPRESSION [None]
  - LUNG ABSCESS [None]
  - MENINGITIS [None]
  - NOSOCOMIAL INFECTION [None]
  - PLEURISY [None]
  - PNEUMONIA [None]
  - PSEUDOMONAS INFECTION [None]
  - PURULENCE [None]
  - URINARY TRACT INFECTION [None]
